FAERS Safety Report 4356557-2 (Version None)
Quarter: 2004Q2

REPORT INFORMATION
  Report Type: 
  Country: None (occurrence: None)
  Receive Date: 20040506
  Receipt Date: 20040428
  Transmission Date: 20050107
  Serious: Yes (Other)
  Sender: FDA-Public Use
  Company Number: 2004-04-1698

PATIENT
  Age: 54 Year
  Sex: Male

DRUGS (2)
  1. REBETOL [Suspect]
     Indication: HEPATITIS C
     Dosage: 200 MG QD ORAL
     Route: 048
     Dates: start: 20040422
  2. INTRON A [Suspect]
     Indication: HEPATITIS C
     Dosage: 1.5 MU QD INTRAMUSCULAR
     Route: 030
     Dates: start: 20040422

REACTIONS (1)
  - PERICARDIAL EFFUSION [None]
